FAERS Safety Report 8564014-2 (Version None)
Quarter: 2012Q3

REPORT INFORMATION
  Report Type: 
  Country: None (occurrence: None)
  Receive Date: 20120803
  Receipt Date: 20120801
  Transmission Date: 20120928
  Serious: Yes (Disabling)
  Sender: FDA-Public Use
  Company Number: PHFR2012GB004275

PATIENT
  Age: 72 Year
  Sex: Male

DRUGS (7)
  1. AZATHIOPRINE [Concomitant]
     Dosage: UNK UKN, UNK
  2. ZOLEDRONIC ACID [Suspect]
     Indication: OSTEOPOROSIS
     Dosage: 5 MG, UNK
     Route: 042
     Dates: start: 20120201
  3. CALCIUM [Concomitant]
     Dosage: UNK UKN, UNK
  4. ACETAMINOPHEN AND CODEINE PHOSPHATE [Concomitant]
     Dosage: UNK UKN, UNK
  5. AMLODIPINE [Concomitant]
     Dosage: UNK UKN, UNK
  6. BALSALAZIDE DISODIUM [Concomitant]
     Dosage: UNK UKN, UNK
  7. VITAMIN D [Concomitant]
     Dosage: UNK UKN, UNK

REACTIONS (5)
  - FEELING ABNORMAL [None]
  - LETHARGY [None]
  - PAIN [None]
  - MALAISE [None]
  - HEADACHE [None]
